FAERS Safety Report 23227064 (Version 3)
Quarter: 2025Q1

REPORT INFORMATION
  Report Type: Spontaneous
  Country: US (occurrence: US)
  Receive Date: 20231124
  Receipt Date: 20250107
  Transmission Date: 20250409
  Serious: Yes (Other)
  Sender: PFIZER
  Company Number: US-PFIZER INC-PV202300191240

PATIENT
  Age: 85 Year
  Sex: Male

DRUGS (4)
  1. VYNDAMAX [Suspect]
     Active Substance: TAFAMIDIS
     Indication: Cardiac amyloidosis
     Dosage: 61 MG, 1X/DAY
     Dates: end: 202411
  2. METOPROLOL [Concomitant]
     Active Substance: METOPROLOL
     Dosage: 25MG TWICE A DAY
  3. TORSEMIDE [Concomitant]
     Active Substance: TORSEMIDE
     Dosage: 20 MG ONE EVERY OTHER 2 DAYS
  4. VITAMIN D NOS [Concomitant]
     Active Substance: CHOLECALCIFEROL\ERGOCALCIFEROL
     Dosage: 2,000 MG ONCE DAY

REACTIONS (4)
  - Cardiac pacemaker insertion [Unknown]
  - Acute kidney injury [Unknown]
  - Bladder cancer stage IV [Unknown]
  - Weight decreased [Unknown]

NARRATIVE: CASE EVENT DATE: 20231101
